FAERS Safety Report 15394570 (Version 1)
Quarter: 2018Q3

REPORT INFORMATION
  Report Type: Spontaneous
  Country: US (occurrence: US)
  Receive Date: 20180918
  Receipt Date: 20180918
  Transmission Date: 20181010
  Serious: No
  Sender: FDA-Public Use
  Company Number: US-GLENMARK PHARMACEUTICALS-2018GMK036832

PATIENT

DRUGS (2)
  1. LISINOPRIL AND HYDROCHLOROTHIAZIDE [Concomitant]
     Active Substance: HYDROCHLOROTHIAZIDE\LISINOPRIL
     Indication: HYPERTENSION
     Dosage: UNK, OD
     Route: 048
     Dates: start: 2017
  2. NAPROXEN TABLETS USP [Suspect]
     Active Substance: NAPROXEN
     Indication: PERIPHERAL SWELLING
     Dosage: 500 MG, BID (2X A DAY)
     Route: 048
     Dates: start: 20180717, end: 20180728

REACTIONS (6)
  - Pruritus [Unknown]
  - Eye swelling [Not Recovered/Not Resolved]
  - Treatment noncompliance [Unknown]
  - Paraesthesia [Not Recovered/Not Resolved]
  - Feeling hot [Unknown]
  - Blister [Not Recovered/Not Resolved]
